FAERS Safety Report 9213122 (Version 1)
Quarter: 2013Q1

REPORT INFORMATION
  Report Type: Spontaneous
  Country: US (occurrence: None)
  Receive Date: 20120820
  Receipt Date: 20120820
  Transmission Date: 20140127
  Serious: No
  Sender: FDA-Public Use
  Company Number: 1000036931

PATIENT
  Age: 46 Year
  Sex: Female

DRUGS (3)
  1. VIIBRYD [Suspect]
     Indication: DEPRESSION
     Dosage: 10 MG 1 IN 1 D
     Route: 048
     Dates: start: 201102, end: 2011
  2. WELLBUTRIN (BUPROPION HYDROCHLORIDE) (BUPROPION HYDROCHLORIDE) [Concomitant]
  3. LITHIUM (LITHIUM) (LITHIUM) [Concomitant]

REACTIONS (5)
  - Paraesthesia [None]
  - Scratch [None]
  - Malabsorption [None]
  - Hypomania [None]
  - Dizziness [None]
